FAERS Safety Report 8676157 (Version 3)
Quarter: 2013Q4

REPORT INFORMATION
  Report Type: Spontaneous
  Country: US (occurrence: US)
  Receive Date: 20120720
  Receipt Date: 20131031
  Transmission Date: 20140711
  Serious: Yes (Hospitalization)
  Sender: FDA-Public Use
  Company Number: US-009507513-1207USA003043

PATIENT
  Age: 79 Year
  Sex: Female
  Weight: 65.76 kg

DRUGS (8)
  1. JANUVIA [Suspect]
     Indication: TYPE 2 DIABETES MELLITUS
     Dosage: UNK
     Route: 048
     Dates: end: 20120622
  2. ACTOS [Suspect]
     Indication: TYPE 2 DIABETES MELLITUS
     Dosage: UNK
     Dates: end: 20120622
  3. AMARYL [Suspect]
     Indication: TYPE 2 DIABETES MELLITUS
     Dosage: 2 MG, QD
     Route: 048
     Dates: start: 20120621, end: 20120622
  4. DIOVAN [Concomitant]
     Indication: HYPERTENSION
     Dosage: 80 MG, BID
     Dates: start: 2010
  5. TRICOR (FENOFIBRATE) [Concomitant]
     Indication: BLOOD TRIGLYCERIDES INCREASED
     Dosage: 8 MG, QD
     Dates: start: 2001
  6. LIPITOR [Concomitant]
     Dosage: UNK
     Dates: start: 2010
  7. TEMAZEPAM [Concomitant]
     Indication: SLEEP DISORDER
     Dosage: UNK
  8. LOPRESSOR [Concomitant]
     Dosage: UNK
     Dates: start: 2001

REACTIONS (14)
  - Heart rate increased [Unknown]
  - Feeling abnormal [Unknown]
  - Nausea [Recovered/Resolved]
  - Coordination abnormal [Unknown]
  - Blood glucose abnormal [Unknown]
  - Headache [Recovered/Resolved]
  - Tremor [Recovered/Resolved]
  - Adverse event [Unknown]
  - Muscular weakness [Unknown]
  - Blood glucose decreased [Unknown]
  - Malaise [Unknown]
  - Dizziness [Recovered/Resolved]
  - Abdominal pain upper [Recovered/Resolved]
  - Bladder disorder [Unknown]
